FAERS Safety Report 6650965-2 (Version None)
Quarter: 2010Q1

REPORT INFORMATION
  Report Type: 
  Country: None (occurrence: None)
  Receive Date: 20100325
  Receipt Date: 20100312
  Transmission Date: 20100710
  Serious: No
  Sender: FDA-Public Use
  Company Number: US-BIOGENIDEC-2010BI008698

PATIENT
  Age: 43 Year
  Sex: Female

DRUGS (2)
  1. TYSABRI [Suspect]
     Indication: MULTIPLE SCLEROSIS
     Route: 042
     Dates: start: 20090101, end: 20090101
  2. REBIF [Concomitant]
     Indication: MULTIPLE SCLEROSIS
     Dates: start: 20080101

REACTIONS (2)
  - BALANCE DISORDER [None]
  - DEPRESSION [None]
